FAERS Safety Report 4547326-9 (Version None)
Quarter: 2005Q1

REPORT INFORMATION
  Report Type: 
  Country: None (occurrence: None)
  Receive Date: 20050107
  Receipt Date: 20041227
  Transmission Date: 20050727
  Serious: Yes (Hospitalization)
  Sender: FDA-Public Use
  Company Number: IT-BRISTOL-MYERS SQUIBB COMPANY-12812632

PATIENT
  Age: 1 Day

DRUGS (1)
  1. AMPICILLIN [Suspect]
     Route: 064

REACTIONS (9)
  - BRADYCARDIA [None]
  - CONVULSION [None]
  - DYSKINESIA [None]
  - EXTRAPYRAMIDAL DISORDER [None]
  - HYPERTONIA [None]
  - HYPOTONIA [None]
  - METABOLIC ACIDOSIS [None]
  - PALLOR [None]
  - QUADRIPLEGIA [None]
